FAERS Safety Report 8782248 (Version 1)
Quarter: 2012Q4

REPORT INFORMATION
  Report Type: Report from Study
  Country: US (occurrence: US)
  Receive Date: 20120913
  Receipt Date: 20120913
  Transmission Date: 20130627
  Serious: No
  Sender: FDA-Public Use
  Company Number: US-VERTEX PHARMACEUTICAL INC.-AE-2012-010324

PATIENT

DRUGS (7)
  1. INCIVEK [Suspect]
     Indication: HEPATITIS C
     Route: 048
  2. PANTOPRAZOLE [Concomitant]
  3. DIOVAN [Concomitant]
  4. METFORMIN [Concomitant]
  5. BUDESONIDE [Concomitant]
  6. SUDAFED [Concomitant]
  7. SALINE MIST SPR [Concomitant]

REACTIONS (2)
  - Oedema peripheral [Unknown]
  - Pruritus [Unknown]
